FAERS Safety Report 11315825 (Version 1)
Quarter: 2015Q3

REPORT INFORMATION
  Report Type: Spontaneous
  Country: US (occurrence: None)
  Receive Date: 20150724
  Receipt Date: 20150724
  Transmission Date: 20151125
  Serious: Yes (Hospitalization, Other)
  Sender: FDA-Public Use
  Company Number: KAD201507-002352

PATIENT
  Age: 54 Year
  Sex: Female
  Weight: 85.27 kg

DRUGS (4)
  1. SPIRONOLACTONE. [Concomitant]
     Active Substance: SPIRONOLACTONE
  2. RIVAVIRIN (RIBAVIRIN) [Suspect]
     Active Substance: RIBAVIRIN
     Indication: HEPATITIS C
     Route: 048
     Dates: start: 20150312
  3. LISINOPRIL. [Concomitant]
     Active Substance: LISINOPRIL
  4. VIEKIRA PAK [Suspect]
     Active Substance: DASABUVIR\OMBITASVIR\PARITAPREVIR\RITONAVIR
     Indication: HEPATITIS C
     Route: 048
     Dates: start: 20150312, end: 20150513

REACTIONS (3)
  - Blood urea increased [None]
  - Hyponatraemia [None]
  - Hyperkalaemia [None]

NARRATIVE: CASE EVENT DATE: 20150326
